FAERS Safety Report 8475585-9 (Version None)
Quarter: 2012Q2

REPORT INFORMATION
  Report Type: 
  Country: None (occurrence: None)
  Receive Date: 20120628
  Receipt Date: 20120623
  Transmission Date: 20120825
  Serious: Yes (Other)
  Sender: FDA-Public Use
  Company Number: PHHO2009TH00781

PATIENT
  Sex: Male
  Weight: 56.3 kg

DRUGS (9)
  1. MULTI-VITAMINS [Concomitant]
     Indication: SUPPLEMENTATION THERAPY
     Dosage: UNK
     Dates: start: 20071024
  2. VITAMIN D [Concomitant]
     Dosage: UNK
  3. DEXAMETHASONE [Concomitant]
     Dosage: UNK
     Dates: start: 20080421
  4. CALCIUM [Concomitant]
     Dosage: UNK
  5. DOCETAXEL [Concomitant]
     Dosage: UNK
     Dates: start: 20080421
  6. IRESSA [Concomitant]
     Indication: LUNG NEOPLASM MALIGNANT
     Dosage: UNK
     Dates: start: 20081224
  7. ZOLEDRONOC ACID [Suspect]
     Indication: METASTASES TO BONE
     Dosage: 4 MG, UNK
     Route: 042
     Dates: start: 20070509, end: 20081215
  8. CARBOPLATIN [Concomitant]
     Dosage: UNK
     Dates: start: 20080421
  9. ENALAPRIL MALEATE [Concomitant]
     Indication: HYPERTENSION
     Dosage: UNK
     Dates: start: 20020101

REACTIONS (10)
  - PURULENT DISCHARGE [None]
  - BACTERIAL INFECTION [None]
  - ERYTHEMA [None]
  - OSTEONECROSIS OF JAW [None]
  - BONE LESION [None]
  - HAEMORRHAGE [None]
  - OSTEOMYELITIS [None]
  - SOFT TISSUE INFECTION [None]
  - SWELLING [None]
  - PAIN [None]
